FAERS Safety Report 15643112 (Version 1)
Quarter: 2018Q4

REPORT INFORMATION
  Report Type: Spontaneous
  Country: JP (occurrence: JP)
  Receive Date: 20181121
  Receipt Date: 20181121
  Transmission Date: 20190205
  Serious: Yes (Other)
  Sender: FDA-Public Use
  Company Number: JP-BAYER-2018-212305

PATIENT
  Age: 49 Year
  Sex: Female

DRUGS (1)
  1. NEXAVAR [Suspect]
     Active Substance: SORAFENIB
     Indication: HEPATOCELLULAR CARCINOMA
     Dosage: DAILY DOSE 800 MG
     Route: 048
     Dates: start: 201805, end: 201808

REACTIONS (2)
  - Hepatocellular carcinoma [Not Recovered/Not Resolved]
  - Tumour embolism [None]

NARRATIVE: CASE EVENT DATE: 201808
